FAERS Safety Report 17285727 (Version 2)
Quarter: 2020Q2

REPORT INFORMATION
  Report Type: Report from Study
  Country: US (occurrence: US)
  Receive Date: 20200118
  Receipt Date: 20200504
  Transmission Date: 20200713
  Serious: Yes (Hospitalization, Other)
  Sender: FDA-Public Use
  Company Number: US-ROCHE-2524174

PATIENT
  Sex: Female

DRUGS (3)
  1. ESBRIET [Suspect]
     Active Substance: PIRFENIDONE
     Indication: PULMONARY FIBROSIS
     Dosage: TAKE 3 TABLET(S) BY MOUTH 3 TIMES A DAY WITH FOOD
     Route: 048
  2. ESBRIET [Suspect]
     Active Substance: PIRFENIDONE
     Indication: ACUTE LEUKAEMIA
  3. ESBRIET [Suspect]
     Active Substance: PIRFENIDONE
     Indication: CHRONIC LEUKAEMIA

REACTIONS (2)
  - Pneumonia [Unknown]
  - Chronic leukaemia [Unknown]
